FAERS Safety Report 4967559-7 (Version None)
Quarter: 2006Q2

REPORT INFORMATION
  Report Type: 
  Country: None (occurrence: None)
  Receive Date: 20060410
  Receipt Date: 20060330
  Transmission Date: 20061013
  Serious: Yes (Hospitalization)
  Sender: FDA-Public Use
  Company Number: FR-GLAXOSMITHKLINE-B0419289A

PATIENT
  Age: 61 Year
  Sex: Male

DRUGS (4)
  1. LAMICTAL [Suspect]
     Indication: DRUG USE FOR UNKNOWN INDICATION
     Route: 048
     Dates: start: 20060215, end: 20060228
  2. DEPAKOTE [Concomitant]
     Route: 048
     Dates: end: 20060201
  3. RIVOTRIL [Concomitant]
     Route: 065
     Dates: end: 20060201
  4. TERCIAN [Concomitant]
     Route: 065
     Dates: end: 20060201

REACTIONS (6)
  - BRONCHITIS [None]
  - DRUG RASH WITH EOSINOPHILIA AND SYSTEMIC SYMPTOMS [None]
  - EOSINOPHILIA [None]
  - GENERALISED ERYTHEMA [None]
  - PLEURAL EFFUSION [None]
  - PYREXIA [None]
